FAERS Safety Report 5734431-4 (Version None)
Quarter: 2008Q2

REPORT INFORMATION
  Report Type: 
  Country: None (occurrence: None)
  Receive Date: 20080512
  Receipt Date: 20080507
  Transmission Date: 20081010
  Serious: Yes (Other)
  Sender: FDA-Public Use
  Company Number: ES-WYE-G01502708

PATIENT
  Age: 72 Year
  Sex: Male

DRUGS (1)
  1. TYGACIL [Suspect]
     Indication: INFECTION
     Dosage: UNKNOWN
     Route: 042
     Dates: start: 20071201, end: 20071201

REACTIONS (2)
  - COAGULOPATHY [None]
  - THROMBOCYTOPENIA [None]
